FAERS Safety Report 7296813-1 (Version None)
Quarter: 2011Q1

REPORT INFORMATION
  Report Type: 
  Country: None (occurrence: None)
  Receive Date: 20110216
  Receipt Date: 20110210
  Transmission Date: 20110831
  Serious: Yes (Disabling, Other)
  Sender: FDA-Public Use
  Company Number: US-MERCK-1007USA02982

PATIENT
  Age: 46 Year
  Sex: Female
  Weight: 60 kg

DRUGS (2)
  1. FOSAMAX [Suspect]
     Indication: OSTEOPOROSIS PROPHYLAXIS
     Route: 048
     Dates: start: 20000101, end: 20060501
  2. FOSAMAX [Suspect]
     Route: 048
     Dates: start: 19960101, end: 20000101

REACTIONS (36)
  - ABSCESS [None]
  - EXCORIATION [None]
  - ADVERSE DRUG REACTION [None]
  - BACK DISORDER [None]
  - CELLULITIS [None]
  - TOOTH ABSCESS [None]
  - OSTEONECROSIS OF JAW [None]
  - DYSLIPIDAEMIA [None]
  - FEBRILE NEUTROPENIA [None]
  - PYREXIA [None]
  - MUSCLE SPASMS [None]
  - HYPERCHOLESTEROLAEMIA [None]
  - HYPOAESTHESIA ORAL [None]
  - IMPAIRED HEALING [None]
  - METASTASIS [None]
  - BENIGN COLONIC NEOPLASM [None]
  - DENTAL ALVEOLAR ANOMALY [None]
  - FOOT FRACTURE [None]
  - GASTROOESOPHAGEAL REFLUX DISEASE [None]
  - ARTHRALGIA [None]
  - OSTEOPOROSIS [None]
  - PAIN [None]
  - HYPOAESTHESIA [None]
  - BREAST CANCER [None]
  - DEPRESSION [None]
  - ANAEMIA [None]
  - BONE DENSITY DECREASED [None]
  - DENTAL CARIES [None]
  - JAW DISORDER [None]
  - VITAMIN B COMPLEX DEFICIENCY [None]
  - PLANTAR FASCIITIS [None]
  - ARTHROPATHY [None]
  - HEADACHE [None]
  - HORMONE LEVEL ABNORMAL [None]
  - ORAL INFECTION [None]
  - HAEMATURIA [None]
